FAERS Safety Report 4609712-8 (Version None)
Quarter: 2005Q1

REPORT INFORMATION
  Report Type: 
  Country: None (occurrence: None)
  Receive Date: 20050314
  Receipt Date: 20050304
  Transmission Date: 20050727
  Serious: Yes (Life-Threatening, Hospitalization, Other)
  Sender: FDA-Public Use
  Company Number: 2005-01-0664

PATIENT
  Age: 54 Year
  Sex: Female

DRUGS (3)
  1. PEG-INTERFERON ALFA-2B INJECTABLE POWDER [Suspect]
     Indication: HEPATITIS C
     Dosage: 80 MCG/0.5 ML SUBCUTANEOUS
     Route: 058
     Dates: start: 20041119, end: 20041213
  2. RIBAVIRIN [Suspect]
     Indication: HEPATITIS C
     Dosage: 800 MG ORAL
     Route: 048
     Dates: start: 20041119, end: 20041213
  3. TYLENOL (CAPLET) [Concomitant]

REACTIONS (3)
  - BACTERAEMIA [None]
  - HEPATIC NEOPLASM MALIGNANT [None]
  - STAPHYLOCOCCAL INFECTION [None]
